FAERS Safety Report 4650348-0 (Version None)
Quarter: 2005Q2

REPORT INFORMATION
  Report Type: 
  Country: None (occurrence: None)
  Receive Date: 20050429
  Receipt Date: 20050413
  Transmission Date: 20051028
  Serious: Yes (Death)
  Sender: FDA-Public Use
  Company Number: B0377832A

PATIENT
  Age: 86 Year
  Sex: Male

DRUGS (5)
  1. LANOXIN [Suspect]
     Dosage: 125 MG/DAY / PER DAY
  2. CLARITHROMYCIN [Suspect]
     Indication: NASOPHARYNGITIS
     Dosage: 500 MG / SEE DOSAGE TEXT
  3. FRUSEMIDE [Concomitant]
  4. POTASSIUM ASCORBATE [Concomitant]
  5. ENALAPRIL MALEATE [Concomitant]

REACTIONS (20)
  - ABDOMINAL PAIN UPPER [None]
  - BLOOD CALCIUM DECREASED [None]
  - BLOOD MAGNESIUM DECREASED [None]
  - BRADYCARDIA [None]
  - CALCIUM IONISED DECREASED [None]
  - CARDIAC ARREST [None]
  - CARDIAC MURMUR [None]
  - CARDIOGENIC SHOCK [None]
  - CARDIOMEGALY [None]
  - CREPITATIONS [None]
  - HYPOTENSION [None]
  - JUGULAR VEIN DISTENSION [None]
  - NASOPHARYNGITIS [None]
  - NAUSEA [None]
  - NODAL ARRHYTHMIA [None]
  - RALES [None]
  - RESPIRATORY RATE INCREASED [None]
  - THERAPEUTIC AGENT TOXICITY [None]
  - VENTRICULAR TACHYCARDIA [None]
  - VOMITING [None]
